FAERS Safety Report 8398577-7 (Version None)
Quarter: 2012Q2

REPORT INFORMATION
  Report Type: 
  Country: None (occurrence: None)
  Receive Date: 20120531
  Receipt Date: 20120522
  Transmission Date: 20120825
  Serious: Yes (Other)
  Sender: FDA-Public Use
  Company Number: FR-ASTRAZENECA-2012SE33668

PATIENT
  Age: 22471 Day
  Sex: Female

DRUGS (1)
  1. DIPRIVAN [Suspect]
     Indication: GENERAL ANAESTHESIA
     Route: 042
     Dates: start: 20111006, end: 20111006

REACTIONS (2)
  - EXTRAVASATION [None]
  - SKIN NECROSIS [None]
